FAERS Safety Report 7115424-1 (Version None)
Quarter: 2010Q4

REPORT INFORMATION
  Report Type: 
  Country: None (occurrence: None)
  Receive Date: 20101122
  Receipt Date: 20101109
  Transmission Date: 20110411
  Serious: Yes (Other)
  Sender: FDA-Public Use
  Company Number: PHHY2010US77738

PATIENT
  Age: 70 Year
  Sex: Female

DRUGS (1)
  1. KETOTIFEN FUMARATE [Suspect]
     Indication: GASTROINTESTINAL DISORDER

REACTIONS (4)
  - ALANINE AMINOTRANSFERASE INCREASED [None]
  - ASPARTATE AMINOTRANSFERASE INCREASED [None]
  - BLOOD ALKALINE PHOSPHATASE INCREASED [None]
  - HEPATOTOXICITY [None]
